FAERS Safety Report 22642657 (Version 1)
Quarter: 2023Q2

REPORT INFORMATION
  Report Type: Spontaneous
  Country: CH (occurrence: CH)
  Receive Date: 20230627
  Receipt Date: 20230627
  Transmission Date: 20230721
  Serious: Yes (Other)
  Sender: FDA-Public Use
  Company Number: None

PATIENT
  Age: 63 Year
  Sex: Male

DRUGS (56)
  1. DOMPERIDONE [Suspect]
     Active Substance: DOMPERIDONE
     Indication: Product used for unknown indication
     Dosage: OCCASIONALLY
     Route: 048
  2. AMOXICILLIN\CLAVULANIC ACID [Suspect]
     Active Substance: AMOXICILLIN\CLAVULANIC ACID
     Indication: Encephalitis
     Route: 065
     Dates: start: 20230422, end: 20230427
  3. ACYCLOVIR [Suspect]
     Active Substance: ACYCLOVIR
     Indication: Pneumonia
     Dosage: INDICATION: VENTILATOR-ASSOCIATED S. AUREUS PNEUMONIA
     Route: 065
     Dates: start: 20230401, end: 20230404
  4. HEPARIN [Suspect]
     Active Substance: HEPARIN SODIUM
     Indication: Pneumonia
     Route: 065
  5. BACTRIM [Suspect]
     Active Substance: SULFAMETHOXAZOLE\TRIMETHOPRIM
     Indication: Encephalitis
     Dosage: THERAPY ON GOING  BACTRIMBACTRIM FORTE
     Route: 065
     Dates: start: 20230411
  6. PHENYTOIN [Suspect]
     Active Substance: PHENYTOIN
     Indication: Encephalitis
     Route: 065
     Dates: start: 20230402
  7. PHENYTOIN [Suspect]
     Active Substance: PHENYTOIN
     Indication: Encephalitis
     Dosage: DOSE WAS INCREASED
     Route: 065
     Dates: start: 20230423
  8. PHENYTOIN [Suspect]
     Active Substance: PHENYTOIN
     Indication: Encephalitis
     Dosage: 600 MILLIGRAM DAILY;
     Route: 065
     Dates: start: 20230424
  9. PHENYTOIN [Suspect]
     Active Substance: PHENYTOIN
     Indication: Encephalitis
     Dosage: IT IS NOT KNOWN IF THIS WAS A UNIQUE INTAKE OR NOT.
     Route: 065
     Dates: start: 20230511
  10. PHENYTOIN [Suspect]
     Active Substance: PHENYTOIN
     Indication: Encephalitis
     Dosage: IT IS NOT KNOWN IF THIS WAS A UNIQUE INTAKE OR NOT.
     Route: 065
     Dates: start: 20230512
  11. PHENYTOIN [Suspect]
     Active Substance: PHENYTOIN
     Indication: Encephalitis
     Dosage: IT IS NOT KNOWN IF THIS WAS A UNIQUE INTAKE OR NOT.
     Route: 065
     Dates: start: 20230517
  12. LEVETIRACETAM [Suspect]
     Active Substance: LEVETIRACETAM
     Indication: Encephalitis
     Dosage: 3000 MILLIGRAM DAILY;
     Route: 065
     Dates: start: 20230330
  13. LEVETIRACETAM [Suspect]
     Active Substance: LEVETIRACETAM
     Indication: Encephalitis
     Route: 048
     Dates: start: 20230511, end: 20230517
  14. LEVETIRACETAM [Suspect]
     Active Substance: LEVETIRACETAM
     Indication: Encephalitis
     Route: 048
     Dates: start: 20230511, end: 20230517
  15. DAFALGAN [Suspect]
     Active Substance: ACETAMINOPHEN
     Indication: Product used for unknown indication
     Dosage: TABLET FORMULATION
     Route: 048
  16. DAFALGAN [Suspect]
     Active Substance: ACETAMINOPHEN
     Dosage: EFFERVESCENT TABLET FORMULATION, OCCASIONALLY, IN RESERVE
     Route: 048
  17. METAMIZOLE [Suspect]
     Active Substance: METAMIZOLE
     Indication: Pyrexia
     Dosage: OCCASIONALLY, INDICATION: PNEUMONIA, IN RESERVE
     Route: 048
  18. METAMIZOLE [Suspect]
     Active Substance: METAMIZOLE
     Indication: Pyrexia
     Dosage: OCCASIONALLY, NO INDICATION STATED, IN RESERVE
     Route: 065
  19. ROCEPHIN [Suspect]
     Active Substance: CEFTRIAXONE SODIUM
     Indication: Pneumonia
     Route: 065
     Dates: start: 20230401, end: 20230404
  20. BENSERAZIDE HYDROCHLORIDE\LEVODOPA [Suspect]
     Active Substance: BENSERAZIDE HYDROCHLORIDE\LEVODOPA
     Indication: Product used for unknown indication
     Dosage: 125 MG, 3X DAILY P.O.
     Route: 048
     Dates: start: 20230512, end: 20230517
  21. ENOXAPARIN SODIUM [Suspect]
     Active Substance: ENOXAPARIN SODIUM
     Indication: Product used for unknown indication
     Route: 065
     Dates: start: 20230512, end: 20230517
  22. METOPROLOL [Suspect]
     Active Substance: METOPROLOL
     Indication: Product used for unknown indication
     Dosage: OCCASIONALLY, IN RESERVE
     Route: 065
  23. FYCOMPA [Suspect]
     Active Substance: PERAMPANEL
     Indication: Product used for unknown indication
     Dosage: 16 ML DAILY; 0.5MG/1ML, 16 ML PER DAY
     Route: 065
     Dates: start: 20230514, end: 20230517
  24. VIMPAT [Suspect]
     Active Substance: LACOSAMIDE
     Indication: Product used for unknown indication
     Dosage: 100 MG, 2X DAILY P.O.
     Route: 048
     Dates: start: 20230512, end: 20230517
  25. NEXIUM [Suspect]
     Active Substance: ESOMEPRAZOLE MAGNESIUM
     Indication: Product used for unknown indication
     Dosage: 40 MILLIGRAM DAILY; 40 MG, P.O., 1X DAILY
     Route: 048
     Dates: start: 20230511, end: 20230517
  26. DEXAMETHASONE [Concomitant]
     Active Substance: DEXAMETHASONE
     Indication: Encephalitis
     Route: 065
     Dates: start: 20230403
  27. SOLU-MEDROL [Concomitant]
     Active Substance: METHYLPREDNISOLONE SODIUM SUCCINATE
     Indication: Encephalitis
     Route: 065
     Dates: start: 20230404, end: 20230411
  28. SOLU-MEDROL [Concomitant]
     Active Substance: METHYLPREDNISOLONE SODIUM SUCCINATE
     Indication: Pneumonia
     Dosage: 1 GRAM DAILY; 1 G DAILY, CURRENTLY DOSE IS 80 MG DAILY
     Route: 065
     Dates: start: 20230404, end: 20230409
  29. METHYLPREDNISOLONE SODIUM SUCCINATE [Concomitant]
     Active Substance: METHYLPREDNISOLONE SODIUM SUCCINATE
     Indication: Encephalitis
     Dosage: CONTINUING THERAPY
     Route: 065
     Dates: start: 20230412
  30. TOPIRAMATE [Concomitant]
     Active Substance: TOPIRAMATE
     Indication: Encephalitis
     Route: 065
     Dates: start: 20230403
  31. TOPIRAMATE [Concomitant]
     Active Substance: TOPIRAMATE
     Indication: Encephalitis
     Dosage: DOSE INCREASED
     Route: 065
     Dates: start: 20230423
  32. TOPIRAMATE [Concomitant]
     Active Substance: TOPIRAMATE
     Indication: Encephalitis
     Route: 048
     Dates: start: 20230511, end: 20230517
  33. PERAMPANEL [Concomitant]
     Active Substance: PERAMPANEL
     Indication: Encephalitis
     Dosage: 8 MILLIGRAM DAILY; 8 MG DAILY
     Route: 065
     Dates: start: 20230331
  34. FLUDROCORTISONE [Concomitant]
     Active Substance: FLUDROCORTISONE
     Indication: Encephalitis
     Dosage: .1 MILLIGRAM DAILY; 0.1 MG DAILY
     Route: 065
  35. FENTANYL [Concomitant]
     Active Substance: FENTANYL
     Indication: Encephalitis
     Dosage: OCCASIONALLY
     Route: 040
  36. URAPIDIL [Concomitant]
     Active Substance: URAPIDIL
     Indication: Encephalitis
     Dosage: OCCASIONALLY
     Route: 065
  37. AMOXICILLIN [Concomitant]
     Active Substance: AMOXICILLIN
     Indication: Pneumonia
     Route: 065
     Dates: start: 20230401, end: 20230404
  38. ACETAMINOPHEN [Concomitant]
     Active Substance: ACETAMINOPHEN
     Indication: Pneumonia
     Dosage: 2 GRAM DAILY; 2G DAILY
     Route: 065
  39. INSULIN NOS [Concomitant]
     Active Substance: INSULIN NOS
     Indication: Pneumonia
     Route: 065
  40. PROPOFOL [Concomitant]
     Active Substance: PROPOFOL
     Indication: Product used for unknown indication
     Route: 065
     Dates: end: 20230421
  41. CLONAZEPAM [Concomitant]
     Active Substance: CLONAZEPAM
     Indication: Product used for unknown indication
     Route: 065
     Dates: start: 20230421
  42. LACOSAMIDE [Concomitant]
     Active Substance: LACOSAMIDE
     Indication: Product used for unknown indication
     Route: 065
     Dates: start: 20230331, end: 20230403
  43. PIPERACILLIN SODIUM\TAZOBACTAM SODIUM [Concomitant]
     Active Substance: PIPERACILLIN SODIUM\TAZOBACTAM SODIUM
     Indication: Product used for unknown indication
     Route: 065
     Dates: start: 20230420, end: 20230422
  44. CEFTRIAXONE [Concomitant]
     Active Substance: CEFTRIAXONE
     Indication: Product used for unknown indication
     Route: 065
     Dates: start: 20230402, end: 20230404
  45. DEXAMETHASONE [Concomitant]
     Active Substance: DEXAMETHASONE
     Indication: Product used for unknown indication
     Dosage: 40 MILLIGRAM DAILY; 40 MG DAILY
     Route: 065
     Dates: start: 20230403, end: 20230404
  46. CALCIMAGONCALCIMAGON D3 FORTE [Concomitant]
     Indication: Product used for unknown indication
     Dosage: 1000 MILLIGRAM DAILY; 1000 MG, P.O., 1X DAILY
     Route: 048
  47. PREDNISOLONE [Concomitant]
     Active Substance: PREDNISOLONE
     Indication: Product used for unknown indication
     Route: 048
     Dates: start: 20230513, end: 20230517
  48. SODIUM PICOSULFATE [Concomitant]
     Active Substance: SODIUM PICOSULFATE
     Indication: Product used for unknown indication
     Route: 065
     Dates: start: 20230515, end: 20230517
  49. ISOSOURCEISOSOURCE PROTEIN LIQUID [Concomitant]
     Indication: Product used for unknown indication
     Route: 065
  50. LACRI-VISION [Concomitant]
     Indication: Product used for unknown indication
     Dosage: 4 GTT DAILY; UNCLEAR IF THERAPY CONTINUED OR NOT, 4 DROPS DAILY ON 17.05.2023
     Route: 065
     Dates: start: 20230517
  51. LAXIPEG [Concomitant]
     Indication: Product used for unknown indication
     Dosage: OCCASIONALLY
     Route: 048
  52. MIDAZOLAM [Concomitant]
     Active Substance: MIDAZOLAM
     Indication: Product used for unknown indication
     Dosage: NASAL SPRAY FORMULATION, OCCASIONALLY
     Route: 065
  53. VALVERDE SCHLAF [Concomitant]
     Indication: Product used for unknown indication
     Dosage: OCCASIONALLY
     Route: 065
  54. BISACODYL [Concomitant]
     Active Substance: BISACODYL
     Indication: Product used for unknown indication
     Dosage: OCCASIONALLY
     Route: 065
  55. SODIUM CITRATE\SODIUM LAURYL SULFOACETATE\SORBITOL [Concomitant]
     Active Substance: SODIUM CITRATE\SODIUM LAURYL SULFOACETATE\SORBITOL
     Indication: Product used for unknown indication
     Dosage: OCCASIONALLY
     Route: 065
  56. MORPHINE [Concomitant]
     Active Substance: MORPHINE
     Indication: Product used for unknown indication
     Route: 065
     Dates: end: 20230421

REACTIONS (2)
  - Drug-induced liver injury [Recovering/Resolving]
  - Liver function test abnormal [Recovering/Resolving]

NARRATIVE: CASE EVENT DATE: 20230425
